FAERS Safety Report 14282464 (Version 1)
Quarter: 2017Q4

REPORT INFORMATION
  Report Type: Spontaneous
  Country: US (occurrence: US)
  Receive Date: 20171213
  Receipt Date: 20171213
  Transmission Date: 20180321
  Serious: No
  Sender: FDA-Public Use
  Company Number: US-MALLINCKRODT-T201700324

PATIENT
  Age: 66 Year
  Sex: Female
  Weight: 79 kg

DRUGS (4)
  1. FENTANYL TRANSDERMAL SYSTEM [Suspect]
     Active Substance: FENTANYL
     Indication: MEDICAL DEVICE IMPLANTATION
     Dosage: 50 MCG/HR, Q48HR
     Route: 062
  2. FENTANYL TRANSDERMAL SYSTEM [Suspect]
     Active Substance: FENTANYL
     Dosage: 12 MCG/HR, Q48HR
     Route: 062
  3. FENTANYL TRANSDERMAL SYSTEM [Suspect]
     Active Substance: FENTANYL
     Indication: SYSTEMIC LUPUS ERYTHEMATOSUS
     Dosage: 12 MCG/HR, Q48HR
     Route: 062
     Dates: start: 2012
  4. FENTANYL TRANSDERMAL SYSTEM [Suspect]
     Active Substance: FENTANYL
     Indication: CONNECTIVE TISSUE DISORDER
     Dosage: 50 MCG/HR, Q48HR
     Route: 062
     Dates: start: 2012

REACTIONS (5)
  - Tremor [Unknown]
  - Pain [Unknown]
  - Incorrect drug administration duration [Unknown]
  - Fall [Unknown]
  - Depressed mood [Not Recovered/Not Resolved]

NARRATIVE: CASE EVENT DATE: 201612
